FAERS Safety Report 13952428 (Version 1)
Quarter: 2017Q3

REPORT INFORMATION
  Report Type: Spontaneous
  Country: US (occurrence: US)
  Receive Date: 20170911
  Receipt Date: 20170911
  Transmission Date: 20171128
  Serious: No
  Sender: FDA-Public Use
  Company Number: US-TEVA-727661ACC

PATIENT
  Sex: Female
  Weight: 67 kg

DRUGS (1)
  1. FENTANYL. [Suspect]
     Active Substance: FENTANYL
     Indication: PRODUCT USED FOR UNKNOWN INDICATION
     Route: 065
     Dates: start: 2007

REACTIONS (6)
  - Tremor [Recovered/Resolved]
  - Drug screen negative [Recovered/Resolved]
  - Agitation [Recovered/Resolved]
  - Withdrawal syndrome [Recovered/Resolved]
  - Irritability [Recovered/Resolved]
  - Anxiety [Recovered/Resolved]

NARRATIVE: CASE EVENT DATE: 2016
